FAERS Safety Report 6704391-8 (Version None)
Quarter: 2010Q2

REPORT INFORMATION
  Report Type: 
  Country: None (occurrence: None)
  Receive Date: 20100430
  Receipt Date: 20100419
  Transmission Date: 20101027
  Serious: Yes (Hospitalization, Other)
  Sender: FDA-Public Use
  Company Number: UA-BRISTOL-MYERS SQUIBB COMPANY-15070535

PATIENT
  Age: 81 Year
  Sex: Male

DRUGS (8)
  1. APIXABAN [Suspect]
     Indication: THROMBOSIS PROPHYLAXIS
     Dosage: INTERRUPTED ON 24MAR10, RESTARTED ON 08APR10, HELD X3 DAYS ON 09APR10, RESTARED 12APR10
     Route: 048
     Dates: start: 20080917
  2. WARFARIN SODIUM [Suspect]
     Indication: THROMBOSIS PROPHYLAXIS
     Dosage: INTERRUPTED ON 24MAR10, RESTARTED ON 08APR10, HELD X3 DAYS ON 09APR10, RESTARED (4 MG) 12APR10
     Route: 048
     Dates: start: 20080917
  3. PLACEBO [Suspect]
     Indication: THROMBOSIS PROPHYLAXIS
     Dosage: INTERRUPTED ON 24MAR10, RESTARTED ON 08APR10, HELD X3 DAYS ON 09APR10, RESTARED 12APR10
     Route: 048
     Dates: start: 20080917
  4. CARDIOMAGNYL [Concomitant]
     Dates: start: 20080909, end: 20100416
  5. ENAP [Concomitant]
     Dates: start: 20080401
  6. METOPROLOL [Concomitant]
     Dates: start: 20080401
  7. DIGOXIN [Concomitant]
     Dates: start: 20080401
  8. VEROSPIRON [Concomitant]
     Dates: start: 20080401

REACTIONS (2)
  - HAEMATOMA [None]
  - SYNOVIAL RUPTURE [None]
